FAERS Safety Report 8740601 (Version 2)
Quarter: 2012Q4

REPORT INFORMATION
  Report Type: 
  Country: US (occurrence: US)
  Receive Date: 20120823
  Receipt Date: 20120910
  Transmission Date: 20130627
  Serious: No
  Sender: FDA-Public Use
  Company Number: US-PFIZER INC-2012203551

PATIENT
  Age: 7 Year
  Sex: Male
  Weight: 21.77 kg

DRUGS (6)
  1. GENOTROPIN [Suspect]
     Indication: GROWTH HORMONE DEFICIENCY
     Dosage: 0.8 mg daily
     Route: 058
     Dates: start: 20080903
  2. GENOTROPIN [Suspect]
     Indication: BODY HEIGHT BELOW NORMAL
     Dosage: 1 mg
     Route: 058
  3. TINACTIN [Concomitant]
     Dosage: UNK
  4. TRIAMCINOLONE [Concomitant]
     Dosage: UNK
  5. ADAPALENE/BENZOYL PEROXIDE [Concomitant]
     Dosage: UNK
  6. MULTIVITAMINS [Concomitant]
     Dosage: UNK

REACTIONS (3)
  - Acne [Unknown]
  - Tic [Unknown]
  - Tremor [Unknown]
